FAERS Safety Report 5956588-2 (Version None)
Quarter: 2008Q4

REPORT INFORMATION
  Report Type: 
  Country: None (occurrence: None)
  Receive Date: 20081118
  Receipt Date: 20081113
  Transmission Date: 20090506
  Serious: Yes (Other)
  Sender: FDA-Public Use
  Company Number: JP-ASTRAZENECA-2008AP08631

PATIENT
  Age: 34 Year
  Sex: Female
  Weight: 44 kg

DRUGS (8)
  1. NAROPIN [Suspect]
     Indication: PAIN
     Route: 008
  2. FAMOTIDINE [Concomitant]
     Indication: PREMEDICATION
     Route: 065
  3. ATROPINE SULFATE [Concomitant]
     Indication: PREMEDICATION
     Route: 065
  4. DIBUCAINE HYDROCHLORIDE [Concomitant]
     Indication: EPIDURAL ANAESTHESIA
     Dosage: 1.2 ML FOR 20 SECONDS
     Route: 024
  5. EPHEDRINE HYDROCHLORIDE [Concomitant]
     Route: 042
  6. METHERGINE [Concomitant]
     Route: 042
  7. METHERGINE [Concomitant]
     Route: 015
  8. OXYTOCIN [Concomitant]
     Route: 015

REACTIONS (1)
  - ANAPHYLACTIC SHOCK [None]
